FAERS Safety Report 6889168-5 (Version None)
Quarter: 2010Q3

REPORT INFORMATION
  Report Type: 
  Country: None (occurrence: None)
  Receive Date: 20100730
  Receipt Date: 20080225
  Transmission Date: 20110219
  Serious: Yes (Other)
  Sender: FDA-Public Use
  Company Number: US-PFIZER INC-2008004895

PATIENT
  Sex: Male

DRUGS (4)
  1. LIPITOR [Suspect]
  2. HERBAL PREPARATION [Suspect]
  3. VITAMINS [Suspect]
  4. ALL OTHER THERAPEUTIC PRODUCTS [Suspect]

REACTIONS (1)
  - RHABDOMYOLYSIS [None]
